FAERS Safety Report 23819590 (Version 1)
Quarter: 2024Q2

REPORT INFORMATION
  Report Type: Spontaneous
  Country: CN (occurrence: CN)
  Receive Date: 20240506
  Receipt Date: 20240506
  Transmission Date: 20240716
  Serious: Yes (Life-Threatening)
  Sender: FDA-Public Use
  Company Number: CN-Merck Healthcare KGaA-2024023522

PATIENT
  Age: 84 Year
  Sex: Female
  Weight: 41 kg

DRUGS (6)
  1. GLUCOPHAGE [Suspect]
     Active Substance: METFORMIN HYDROCHLORIDE
     Indication: Diabetes mellitus
     Route: 048
     Dates: start: 20240404, end: 20240418
  2. DAPAGLIFLOZIN [Suspect]
     Active Substance: DAPAGLIFLOZIN
     Indication: Diabetes mellitus
     Route: 048
     Dates: start: 20240404, end: 20240418
  3. RIVAROXABAN [Concomitant]
     Active Substance: RIVAROXABAN
     Indication: Prophylaxis
     Route: 048
     Dates: start: 20240404, end: 20240418
  4. RIVAROXABAN [Concomitant]
     Active Substance: RIVAROXABAN
     Route: 045
     Dates: start: 20240419, end: 20240423
  5. ATORVASTATIN CALCIUM [Concomitant]
     Active Substance: ATORVASTATIN CALCIUM
     Indication: Cerebral infarction
     Route: 048
     Dates: start: 20240404, end: 20240417
  6. ATORVASTATIN CALCIUM [Concomitant]
     Active Substance: ATORVASTATIN CALCIUM
     Route: 045
     Dates: start: 20240418, end: 20240423

REACTIONS (4)
  - Renal failure [Recovering/Resolving]
  - Urinary tract infection [Recovering/Resolving]
  - Volume blood decreased [Recovering/Resolving]
  - Blood lactic acid increased [Recovering/Resolving]

NARRATIVE: CASE EVENT DATE: 20240416
